FAERS Safety Report 9278295 (Version 2)
Quarter: 2013Q2

REPORT INFORMATION
  Report Type: Report from Study
  Country: IT (occurrence: IT)
  Receive Date: 20130508
  Receipt Date: 20130615
  Transmission Date: 20140414
  Serious: No
  Sender: FDA-Public Use
  Company Number: IT-ROCHE-1220338

PATIENT
  Age: 66 Year
  Sex: Male
  Weight: 80 kg

DRUGS (22)
  1. RHUPH20/RITUXIMAB [Suspect]
     Indication: B-CELL LYMPHOMA
     Dosage: LAST DOSE PRIOR TO SAE:26/FEB/2013
     Route: 058
     Dates: start: 20121227
  2. SULFAMETHOXAZOLE/TRIMETHOPRIM [Concomitant]
     Indication: ANTIVIRAL PROPHYLAXIS
     Dosage: DAILY DOSE: 320+1600 MG
     Route: 065
     Dates: start: 20121130
  3. METFORMIN [Concomitant]
  4. ACICLOVIR [Concomitant]
     Route: 065
     Dates: start: 20121127
  5. GLICLAZIDE [Concomitant]
     Route: 065
     Dates: start: 20130122
  6. IRBESARTAN [Concomitant]
     Indication: HYPERTENSION
     Route: 065
     Dates: start: 20130122
  7. FLUCONAZOLE [Concomitant]
     Indication: ANTIFUNGAL PROPHYLAXIS
     Route: 065
     Dates: start: 20130304, end: 20130314
  8. PARACETAMOL [Concomitant]
     Indication: PREMEDICATION
     Route: 065
     Dates: start: 20121127
  9. HYDROCORTISONE [Concomitant]
     Indication: PREMEDICATION
     Route: 065
     Dates: start: 20121127, end: 20130122
  10. CHLORPHENIRAMINE MALEATE [Concomitant]
     Indication: PREMEDICATION
     Route: 065
     Dates: start: 20121127, end: 20130122
  11. CHLORPHENIRAMINE MALEATE [Concomitant]
     Route: 065
     Dates: start: 20130122
  12. ONDANSETRON [Concomitant]
     Indication: PREMEDICATION
     Route: 065
     Dates: start: 20121127, end: 20130228
  13. PRONTINAL [Concomitant]
     Dosage: DAILY DOSE: 0.8 MG/2 ML
     Route: 065
     Dates: start: 20130326, end: 20130402
  14. BRONCOVALEAS [Concomitant]
     Dosage: DAILY DOSE: 21 DROPS
     Route: 065
     Dates: start: 20130326, end: 20130402
  15. ATEM [Concomitant]
     Dosage: DAILY DOSE: 21 DROPS
     Route: 065
     Dates: start: 20130326, end: 20130402
  16. LANSOPRAZOLE [Concomitant]
     Route: 065
     Dates: start: 20130129
  17. GAVISCON (ITALY) [Concomitant]
     Route: 065
     Dates: start: 20130129, end: 20130314
  18. CIPROFLOXACINE [Concomitant]
     Route: 065
     Dates: start: 20130320, end: 20130401
  19. FILGRASTIM [Concomitant]
     Indication: NEUTROPENIA
     Route: 065
     Dates: start: 20130326, end: 20130401
  20. LEVOFLOXACINE [Concomitant]
     Route: 065
     Dates: start: 20130302, end: 20130306
  21. IMMUNOGLOBULIN [Concomitant]
     Indication: HYPOGLOBULINAEMIA
     Route: 065
     Dates: start: 20130313, end: 20130315
  22. AMPICILLINE [Concomitant]
     Route: 065
     Dates: start: 20130326, end: 20130401

REACTIONS (1)
  - Injection site erythema [Recovered/Resolved]
